FAERS Safety Report 21355157 (Version 1)
Quarter: 2022Q3

REPORT INFORMATION
  Report Type: Spontaneous
  Country: US (occurrence: None)
  Receive Date: 20220920
  Receipt Date: 20220920
  Transmission Date: 20221026
  Serious: Yes (Other)
  Sender: FDA-Public Use
  Company Number: None

PATIENT
  Age: 39 Year
  Sex: Male
  Weight: 67.5 kg

DRUGS (7)
  1. ARTIFICIAL TEARS LUBRICANT EYE DROPS [Suspect]
     Active Substance: GLYCERIN\PROPYLENE GLYCOL
     Indication: Dry eye
     Dates: start: 20220919, end: 20220919
  2. ADDERALL [Concomitant]
     Active Substance: AMPHETAMINE ASPARTATE\AMPHETAMINE SULFATE\DEXTROAMPHETAMINE SACCHARATE\DEXTROAMPHETAMINE SULFATE
  3. XANAX [Concomitant]
     Active Substance: ALPRAZOLAM
  4. NAPROXEN SODIUM [Concomitant]
     Active Substance: NAPROXEN SODIUM
  5. MIRTAZAPINE [Concomitant]
     Active Substance: MIRTAZAPINE
  6. Centrum Multi Vitamin [Concomitant]
  7. Tumeric Curcumin [Concomitant]

REACTIONS (2)
  - Eye movement disorder [None]
  - Instillation site discomfort [None]

NARRATIVE: CASE EVENT DATE: 20220919
